FAERS Safety Report 8829371 (Version 2)
Quarter: 2012Q4

REPORT INFORMATION
  Report Type: 
  Country: BR (occurrence: BR)
  Receive Date: 20121009
  Receipt Date: 20121119
  Transmission Date: 20130627
  Serious: Yes (Other)
  Sender: FDA-Public Use
  Company Number: BR-AMGEN-BRASP2012063550

PATIENT
  Age: 75 Year
  Sex: Female

DRUGS (10)
  1. PROLIA [Suspect]
     Indication: OSTEOPOROSIS
     Dosage: 60 mg/ml, q6mo
     Route: 065
     Dates: start: 20120807
  2. COLLAGEN [Concomitant]
     Dosage: 1SAC Per day
     Dates: start: 20120805
  3. LIPITOR [Concomitant]
  4. SERTRALINE HYDROCHLORIDE [Concomitant]
  5. SYNTHROID [Concomitant]
  6. OMEPRAZOLE [Concomitant]
  7. RIVOTRIL [Concomitant]
  8. ACETYLSALICYLIC ACID [Concomitant]
  9. AMLODIPINE W/ OLMESARTAN [Concomitant]
  10. ATENOLOL W/CHLORTHALIDONE [Concomitant]

REACTIONS (1)
  - Polyarthritis [Recovered/Resolved]
